FAERS Safety Report 21447581 (Version 1)
Quarter: 2022Q4

REPORT INFORMATION
  Report Type: Spontaneous
  Country: ES (occurrence: ES)
  Receive Date: 20221012
  Receipt Date: 20221012
  Transmission Date: 20230113
  Serious: Yes (Hospitalization)
  Sender: FDA-Public Use
  Company Number: None

PATIENT
  Age: 59 Year
  Sex: Male

DRUGS (4)
  1. TICAGRELOR [Suspect]
     Active Substance: TICAGRELOR
     Indication: Ischaemic cardiomyopathy
     Dosage: 180 MILLIGRAM DAILY; TICAGRELOR (8461A) , 90.0MG C/12H, DURATION : 5 DAYS
     Route: 065
     Dates: start: 20210917, end: 20210921
  2. ATORVASTATIN CINFA [Concomitant]
     Indication: Myocardial ischaemia
     Dosage: 40.0 MG CE, STRENGTH  : 40 MG,EFG FILM COATED TABLETS? 28 TABLETS
     Dates: start: 20210319
  3. BISOPROLOL [Concomitant]
     Active Substance: BISOPROLOL
     Indication: Myocardial ischaemia
     Dosage: 1.25 MG CE, BISOPROLOL COR SANDOZ 1.25 MG FILM-COATED TABLETS EFG, 20 TABLETS
     Dates: start: 20210319
  4. TRINOMIA [Concomitant]
     Indication: Myocardial ischaemia
     Dosage: 1.0 CAPS CE, STRENGTH ; 100 MG/40 MG/2.5 MG , 28 CAPSULES
     Dates: start: 20210319

REACTIONS (1)
  - Haemoptysis [Recovered/Resolved]

NARRATIVE: CASE EVENT DATE: 20210917
